FAERS Safety Report 20078750 (Version 3)
Quarter: 2022Q4

REPORT INFORMATION
  Report Type: Report from Study
  Country: CA (occurrence: CA)
  Receive Date: 20211117
  Receipt Date: 20221027
  Transmission Date: 20230113
  Serious: Yes (Hospitalization)
  Sender: FDA-Public Use
  Company Number: CA-CHIESI-2021CHF05636

PATIENT
  Age: 42 Year
  Sex: Male

DRUGS (11)
  1. DEFERIPRONE [Suspect]
     Active Substance: DEFERIPRONE
     Indication: Thalassaemia
     Dosage: 1 DOSAGE FORM, TID
     Route: 048
     Dates: start: 20150504, end: 20211021
  2. DEFERIPRONE [Suspect]
     Active Substance: DEFERIPRONE
     Dosage: 1 DOSAGE FORM, TID
     Route: 048
     Dates: start: 20211027
  3. DEFERIPRONE [Suspect]
     Active Substance: DEFERIPRONE
     Dosage: 1500 MILLIGRAM, TID
     Route: 048
     Dates: start: 20151203
  4. BISOPROLOL [Concomitant]
     Active Substance: BISOPROLOL
     Indication: Product used for unknown indication
     Dosage: UNK
  5. FUROSEMIDE [Concomitant]
     Active Substance: FUROSEMIDE
     Indication: Transfusion
     Dosage: UNK
  6. INSULIN ASPART [Concomitant]
     Active Substance: INSULIN ASPART
     Indication: Product used for unknown indication
     Dosage: UNK
  7. INSULIN DEGLUDEC [Concomitant]
     Active Substance: INSULIN DEGLUDEC
     Indication: Type 1 diabetes mellitus
     Dosage: 30 INTERNATIONAL UNIT, QD
     Route: 058
  8. DELATESTRYL [Concomitant]
     Active Substance: TESTOSTERONE ENANTHATE
     Indication: Endocrinopathy diencephalic
     Dosage: 200 MILLIGRAM, BIW
     Route: 030
  9. WARFARIN [Concomitant]
     Active Substance: WARFARIN
     Indication: Embolism
     Dosage: UNK
  10. ZOPICLONE [Concomitant]
     Active Substance: ZOPICLONE
     Indication: Product used for unknown indication
     Dosage: UNK UNK, PRN
  11. FOLIC ACID [Concomitant]
     Active Substance: FOLIC ACID
     Indication: Product used for unknown indication
     Dosage: 5 MILLIGRAM, QD

REACTIONS (5)
  - International normalised ratio increased [Recovered/Resolved]
  - Product dose omission issue [Recovered/Resolved]
  - Pyrexia [Recovered/Resolved]
  - Hypersomnia [Unknown]
  - Memory impairment [Unknown]

NARRATIVE: CASE EVENT DATE: 20211021
